FAERS Safety Report 9359670 (Version 1)
Quarter: 2013Q2

REPORT INFORMATION
  Report Type: Report from Study
  Country: US (occurrence: US)
  Receive Date: 20130620
  Receipt Date: 20130620
  Transmission Date: 20140414
  Serious: Yes (Hospitalization)
  Sender: FDA-Public Use
  Company Number: US-US-EMD SERONO, INC.-7218649

PATIENT
  Age: 44 Year
  Sex: Female

DRUGS (1)
  1. REBIF [Suspect]
     Indication: PRODUCT USED FOR UNKNOWN INDICATION
     Route: 058
     Dates: start: 20120808

REACTIONS (5)
  - Menorrhagia [Unknown]
  - Diarrhoea [Unknown]
  - Cystitis [Unknown]
  - Bladder dilatation [Unknown]
  - Muscle spasms [Unknown]
